FAERS Safety Report 7501985-7 (Version None)
Quarter: 2011Q2

REPORT INFORMATION
  Report Type: 
  Country: None (occurrence: None)
  Receive Date: 20110523
  Receipt Date: 20110523
  Transmission Date: 20111010
  Serious: Yes (Other)
  Sender: FDA-Public Use
  Company Number: None

PATIENT
  Sex: Female
  Weight: 49.8957 kg

DRUGS (1)
  1. BOTOX [Suspect]
     Indication: SKIN COSMETIC PROCEDURE
     Dosage: 20 - 36 UNITS 3-5 MONTHS INJECT
     Dates: start: 20080101, end: 20100101

REACTIONS (6)
  - SKIN MASS [None]
  - HEADACHE [None]
  - SEBORRHOEIC DERMATITIS [None]
  - EYE SWELLING [None]
  - URTICARIA [None]
  - DRY EYE [None]
